FAERS Safety Report 7044066-1 (Version None)
Quarter: 2010Q4

REPORT INFORMATION
  Report Type: 
  Country: None (occurrence: None)
  Receive Date: 20101013
  Receipt Date: 20101004
  Transmission Date: 20110411
  Serious: Yes (Other)
  Sender: FDA-Public Use
  Company Number: US-PFIZER INC-2010126305

PATIENT
  Sex: Female
  Weight: 86.168 kg

DRUGS (7)
  1. LYRICA [Suspect]
     Indication: NERVE COMPRESSION
     Dosage: 100 MG, 2X/DAY
     Route: 048
     Dates: start: 20100810, end: 20100801
  2. LYRICA [Interacting]
     Indication: NERVOUS SYSTEM DISORDER
  3. ACCOLATE [Concomitant]
     Indication: ASTHMA
     Dosage: TWICE DAILY
  4. SYMBICORT [Concomitant]
     Dosage: TWICE DAILY
  5. TRILIPIX [Concomitant]
     Indication: BLOOD CHOLESTEROL INCREASED
     Dosage: UNK
  6. DARVOCET [Concomitant]
     Dosage: UNK
  7. LOVAZA [Concomitant]
     Indication: BLOOD CHOLESTEROL INCREASED
     Dosage: UNK

REACTIONS (3)
  - CHOKING [None]
  - DYSPNOEA [None]
  - HYPERSENSITIVITY [None]
